FAERS Safety Report 10061603 (Version 1)
Quarter: 2014Q2

REPORT INFORMATION
  Report Type: Spontaneous
  Country: AU (occurrence: AU)
  Receive Date: 20140407
  Receipt Date: 20140407
  Transmission Date: 20141212
  Serious: Yes (Other)
  Sender: FDA-Public Use
  Company Number: AU-ROCHE-1378953

PATIENT
  Sex: Female

DRUGS (6)
  1. XOLAIR [Suspect]
     Indication: PRODUCT USED FOR UNKNOWN INDICATION
     Route: 065
  2. XOLAIR [Suspect]
     Route: 065
     Dates: start: 20131107, end: 2014
  3. XOLAIR [Suspect]
     Route: 065
     Dates: start: 20131010
  4. PREDNISOLONE [Concomitant]
  5. PARIET [Concomitant]
  6. AZITHROMYCIN [Concomitant]

REACTIONS (5)
  - Influenza like illness [Recovered/Resolved]
  - Hyperhidrosis [Unknown]
  - Rash [Unknown]
  - Paraesthesia [Unknown]
  - Pruritus [Unknown]
